FAERS Safety Report 13939955 (Version 1)
Quarter: 2017Q3

REPORT INFORMATION
  Report Type: Spontaneous
  Country: US (occurrence: US)
  Receive Date: 20170906
  Receipt Date: 20170906
  Transmission Date: 20171127
  Serious: Yes (Hospitalization)
  Sender: FDA-Public Use
  Company Number: PHEH2011US05305

PATIENT
  Age: 69 Year
  Sex: Female
  Weight: 64.52 kg

DRUGS (1)
  1. EXJADE [Suspect]
     Active Substance: DEFERASIROX
     Indication: THALASSAEMIA
     Dosage: 1000 MG, QD
     Route: 048
     Dates: start: 20060615, end: 20110817

REACTIONS (1)
  - Post procedural complication [Unknown]

NARRATIVE: CASE EVENT DATE: 20110822
